FAERS Safety Report 7380260-8 (Version None)
Quarter: 2011Q1

REPORT INFORMATION
  Report Type: 
  Country: None (occurrence: None)
  Receive Date: 20110329
  Receipt Date: 20110318
  Transmission Date: 20110831
  Serious: Yes (Hospitalization)
  Sender: FDA-Public Use
  Company Number: US-US-EMD SERONO, INC.-231594J10USA

PATIENT
  Sex: Female
  Weight: 57 kg

DRUGS (11)
  1. REBIF [Suspect]
     Indication: MULTIPLE SCLEROSIS
     Route: 058
     Dates: start: 20090111
  2. LOVASTATIN [Concomitant]
  3. DILTIAZEM HCL [Concomitant]
  4. CLONAZEPAM [Concomitant]
  5. PRILOSEC [Concomitant]
  6. SYNTHROID [Concomitant]
     Indication: HYPOTHYROIDISM
     Route: 048
     Dates: start: 19800101
  7. SYNTHROID [Concomitant]
     Route: 048
     Dates: start: 19800101
  8. MULTI-VITAMINS [Concomitant]
     Route: 048
  9. FLONASE [Concomitant]
  10. ZOLPIDEM [Concomitant]
  11. ATROVENT [Concomitant]

REACTIONS (7)
  - GASTROOESOPHAGEAL REFLUX DISEASE [None]
  - CHRONIC OBSTRUCTIVE PULMONARY DISEASE [None]
  - SLEEP DISORDER [None]
  - ANXIETY [None]
  - BLOOD PRESSURE INCREASED [None]
  - LUNG INFECTION [None]
  - TACHYCARDIA [None]
